FAERS Safety Report 20562512 (Version 1)
Quarter: 2022Q1

REPORT INFORMATION
  Report Type: Spontaneous
  Country: BE (occurrence: BE)
  Receive Date: 20220307
  Receipt Date: 20220307
  Transmission Date: 20220423
  Serious: Yes (Hospitalization)
  Sender: FDA-Public Use
  Company Number: BE-SAOL THERAPEUTICS-2022SAO00056

PATIENT
  Age: 16 Year
  Sex: Female

DRUGS (1)
  1. BACLOFEN [Suspect]
     Active Substance: BACLOFEN
     Route: 065

REACTIONS (5)
  - Respiratory acidosis [Recovering/Resolving]
  - Coma [Recovering/Resolving]
  - Hypotension [Recovering/Resolving]
  - Intentional overdose [Recovered/Resolved]
  - Toxicity to various agents [Recovering/Resolving]
